FAERS Safety Report 5109817-1 (Version None)
Quarter: 2006Q3

REPORT INFORMATION
  Report Type: 
  Country: None (occurrence: None)
  Receive Date: 20060918
  Receipt Date: 20060918
  Transmission Date: 20061208
  Serious: No
  Sender: FDA-Public Use
  Company Number: None

PATIENT
  Sex: Female

DRUGS (1)
  1. XOLAIR [Suspect]
     Indication: ASTHMA
     Dosage: 150 MG Q 4 WEEKS SQ SEPTEMBER DOSE
     Route: 058

REACTIONS (6)
  - ADVERSE DRUG REACTION [None]
  - COLD SWEAT [None]
  - DIZZINESS [None]
  - DRUG INTOLERANCE [None]
  - INCORRECT DOSE ADMINISTERED [None]
  - NAUSEA [None]
